FAERS Safety Report 7095974-7 (Version None)
Quarter: 2010Q4

REPORT INFORMATION
  Report Type: 
  Country: None (occurrence: None)
  Receive Date: 20101109
  Receipt Date: 20101109
  Transmission Date: 20110411
  Serious: Yes (Other)
  Sender: FDA-Public Use
  Company Number: None

PATIENT
  Age: 83 Year
  Sex: Female
  Weight: 48.9885 kg

DRUGS (1)
  1. ALENDRONATE 70 MG NOT AVAILABLE [Suspect]
     Indication: OSTEOPOROSIS
     Dosage: ONE WEEKLY PO
     Route: 048
     Dates: start: 20101017, end: 20101107

REACTIONS (1)
  - MOUTH ULCERATION [None]
